FAERS Safety Report 6933504-8 (Version None)
Quarter: 2010Q3

REPORT INFORMATION
  Report Type: 
  Country: None (occurrence: None)
  Receive Date: 20100820
  Receipt Date: 20100809
  Transmission Date: 20110219
  Serious: Yes (Hospitalization, Other)
  Sender: FDA-Public Use
  Company Number: FR-PFIZER INC-2010099616

PATIENT
  Age: 66 Year
  Sex: Male

DRUGS (8)
  1. LYRICA [Suspect]
     Dosage: 300 MG, SINGLE
     Route: 048
     Dates: end: 20100713
  2. ALPRAZOLAM [Suspect]
     Dosage: 150 MG, SINGLE
     Route: 048
     Dates: end: 20100713
  3. RISPERDAL [Suspect]
     Dosage: 4 MG, SINGLE
     Route: 048
     Dates: end: 20100713
  4. RISPERDAL [Suspect]
     Dosage: 1 MG A DAY
     Dates: start: 20100717, end: 20100719
  5. RISPERDAL [Suspect]
     Dosage: 1 MG A DAY
     Dates: start: 20100724
  6. TERCIAN [Suspect]
     Dosage: 75 MG, SINGLE
     Route: 048
     Dates: end: 20100713
  7. PLAVIX [Concomitant]
     Dosage: 75 MG, 1 TABLET
  8. SULFARLEM [Concomitant]
     Dosage: 6 TABLETS

REACTIONS (4)
  - ATRIOVENTRICULAR BLOCK COMPLETE [None]
  - CONFUSIONAL STATE [None]
  - INCORRECT DOSE ADMINISTERED [None]
  - SOMNOLENCE [None]
